FAERS Safety Report 6272770-1 (Version None)
Quarter: 2009Q3

REPORT INFORMATION
  Report Type: 
  Country: None (occurrence: None)
  Receive Date: 20090716
  Receipt Date: 20090716
  Transmission Date: 20100115
  Serious: No
  Sender: FDA-Public Use
  Company Number: None

PATIENT
  Sex: Female
  Weight: 79.3795 kg

DRUGS (2)
  1. AZITHROMYCIN [Suspect]
     Indication: BRONCHITIS
     Dosage: 250 MG. 1 DAY-5 DAYS
     Dates: start: 20090615
  2. AZITHROMYCIN [Suspect]
     Indication: BRONCHITIS
     Dosage: 250 MG. 1 DAY-5 DAYS
     Dates: start: 20090618

REACTIONS (5)
  - DIARRHOEA [None]
  - DYSPNOEA [None]
  - PRODUCT SUBSTITUTION ISSUE [None]
  - URTICARIA [None]
  - VOMITING [None]
